FAERS Safety Report 13871116 (Version 1)
Quarter: 2017Q3

REPORT INFORMATION
  Report Type: Spontaneous
  Country: US (occurrence: US)
  Receive Date: 20170816
  Receipt Date: 20170816
  Transmission Date: 20171127
  Serious: Yes (Other)
  Sender: FDA-Public Use
  Company Number: US-LUPIN PHARMACEUTICALS INC.-2017-04586

PATIENT
  Age: 31 Year
  Sex: Female
  Weight: 56.69 kg

DRUGS (2)
  1. NEOMYCIN AND POLYMYXIN B SULFATES AND HYDROCO [Suspect]
     Active Substance: HYDROCORTISONE\NEOMYCIN SULFATE\POLYMYXIN B SULFATE
     Indication: EAR INFECTION
     Dosage: 4 DROP, TID
     Route: 001
  2. CEFDINIR CAPSULES USP, 300 MG [Suspect]
     Active Substance: CEFDINIR
     Indication: EAR INFECTION
     Dosage: 300 MG, BID
     Route: 048
     Dates: start: 20170724, end: 20170727

REACTIONS (10)
  - Ear discomfort [Not Recovered/Not Resolved]
  - Ear swelling [Recovered/Resolved]
  - Instillation site pain [Not Recovered/Not Resolved]
  - Deafness [Not Recovered/Not Resolved]
  - Ear pain [Recovered/Resolved]
  - Headache [Unknown]
  - Ear infection [Not Recovered/Not Resolved]
  - Condition aggravated [Not Recovered/Not Resolved]
  - Drug ineffective [Not Recovered/Not Resolved]
  - Pain [Not Recovered/Not Resolved]

NARRATIVE: CASE EVENT DATE: 20170724
